FAERS Safety Report 6372175 (Version 2)
Quarter: 2025Q3

REPORT INFORMATION
  Report Type: Spontaneous
  Country: EU (occurrence: EU)
  Receive Date: 20070731
  Receipt Date: 20250813
  Transmission Date: 20251021
  Serious: Yes (Hospitalization)
  Sender: MERCK SHARP & DOHME LLC
  Company Number: EU-MERCK-0707ITA00037

PATIENT
  Age: 57 Year
  Sex: Female

DRUGS (7)
  1. CANCIDAS [Suspect]
     Active Substance: CASPOFUNGIN ACETATE
     Indication: Candida infection
     Dosage: DOSE DESCRIPTION : 70 MG/KG, QD?DAILY DOSE : 70 MILLIGRAM/KILOGRAM
     Route: 041
  2. CANCIDAS [Suspect]
     Active Substance: CASPOFUNGIN ACETATE
     Indication: Candida infection
     Dosage: DOSE DESCRIPTION : 50 MG/KG, QD?DAILY DOSE : 50 MILLIGRAM/KILOGRAM
     Route: 041
  3. VANCOMYCIN [Concomitant]
     Active Substance: VANCOMYCIN
     Dosage: DOSE DESCRIPTION : 2 G, QD?DAILY DOSE : 2 GRAM
     Route: 048
  4. MEROPENEM [Concomitant]
     Active Substance: MEROPENEM
     Dosage: DOSE DESCRIPTION : 3 G, QD?DAILY DOSE : 3 GRAM
  5. FLUCONAZOLE [Concomitant]
     Active Substance: FLUCONAZOLE
     Dosage: DOSE DESCRIPTION : 400 MG, QD?DAILY DOSE : 400 MILLIGRAM
  6. METRONIDAZOLE [Concomitant]
     Active Substance: METRONIDAZOLE
     Dosage: DOSE DESCRIPTION : 1500 MG, QD?DAILY DOSE : 1500 MILLIGRAM
     Route: 048
  7. UNSPECIFIED INGREDIENT [Concomitant]
     Active Substance: UNSPECIFIED INGREDIENT

REACTIONS (1)
  - Drug ineffective [Recovered/Resolved]
